FAERS Safety Report 5240817-7 (Version None)
Quarter: 2007Q1

REPORT INFORMATION
  Report Type: 
  Country: None (occurrence: None)
  Receive Date: 20061208
  Receipt Date: 20050707
  Transmission Date: 20070707
  Serious: Yes (Other)
  Sender: FDA-Public Use
  Company Number: 2005UW10157

PATIENT
  Age: 49 Year
  Sex: Female
  Weight: 49.895 kg

DRUGS (6)
  1. CRESTOR [Suspect]
     Dosage: 10 MG PO
     Route: 048
     Dates: start: 20041201, end: 20050101
  2. CRESTOR [Suspect]
     Dosage: 5 MG DAILY PO
     Route: 048
     Dates: start: 20050101
  3. FLONASE [Concomitant]
  4. MULTI-VITAMINS [Concomitant]
  5. CALCIUM [Concomitant]
  6. VITAMIN E [Concomitant]

REACTIONS (3)
  - ARTHRALGIA [None]
  - MUSCLE SPASMS [None]
  - OESOPHAGEAL SPASM [None]
